FAERS Safety Report 4856263-1 (Version None)
Quarter: 2005Q4

REPORT INFORMATION
  Report Type: 
  Country: None (occurrence: None)
  Receive Date: 20051219
  Receipt Date: 20051213
  Transmission Date: 20060501
  Serious: Yes (Other)
  Sender: FDA-Public Use
  Company Number: JP-BOEHRINGER INGELHEIM PHARMACEUTICALS, INC.-2005-BP-21449YA

PATIENT
  Age: 83 Year
  Sex: Male

DRUGS (5)
  1. HARNAL [Suspect]
     Indication: BENIGN PROSTATIC HYPERPLASIA
     Route: 048
     Dates: start: 20030702
  2. TOCOPHERYL NICOTINATE [Concomitant]
     Route: 048
  3. NIFEDIPINE [Concomitant]
     Route: 048
  4. BUFFERIN [Concomitant]
     Route: 048
  5. EFONIDIPINE HYDROCHLORIDE [Concomitant]
     Route: 048

REACTIONS (3)
  - BLOOD CREATININE INCREASED [None]
  - BLOOD UREA INCREASED [None]
  - BLOOD URIC ACID INCREASED [None]
